FAERS Safety Report 19099797 (Version 1)
Quarter: 2021Q2

REPORT INFORMATION
  Report Type: Spontaneous
  Country: PL (occurrence: PL)
  Receive Date: 20210407
  Receipt Date: 20210407
  Transmission Date: 20210717
  Serious: Yes (Hospitalization, Other)
  Sender: FDA-Public Use
  Company Number: PL-AUROBINDO-AUR-APL-2021-014382

PATIENT
  Age: 27 Year
  Sex: Male
  Weight: 64.95 kg

DRUGS (5)
  1. ENTRESTO [Suspect]
     Active Substance: SACUBITRIL\VALSARTAN
     Indication: PRODUCT USED FOR UNKNOWN INDICATION
     Dosage: 1 DOSAGE FORM, ONCE A DAY IN MORNING
     Route: 065
  2. METOPROLOL FILM COATED TABLETS [Suspect]
     Active Substance: METOPROLOL
     Indication: PRODUCT USED FOR UNKNOWN INDICATION
     Dosage: 100 MILLIGRAM, (1 AND A HALF TABLET IN THE MORNING)
     Route: 065
  3. METOPROLOL FILM COATED TABLETS [Suspect]
     Active Substance: METOPROLOL
     Dosage: 2 DOSAGE FORM, ONCE A DAY
     Route: 065
  4. TORASEMIDE [Suspect]
     Active Substance: TORSEMIDE
     Indication: PRODUCT USED FOR UNKNOWN INDICATION
     Dosage: 1 DOSAGE FORM, ONCE A DAY IN MORNING
     Route: 065
  5. EPLERENONE. [Suspect]
     Active Substance: EPLERENONE
     Indication: PRODUCT USED FOR UNKNOWN INDICATION
     Dosage: 1 DOSAGE FORM, ONCE A DAY AT NOON
     Route: 065

REACTIONS (4)
  - Pneumonia [Unknown]
  - Cardiac failure [Unknown]
  - Hypokinesia [Unknown]
  - Drug ineffective [Unknown]
